FAERS Safety Report 9414227 (Version 2)
Quarter: 2013Q3

REPORT INFORMATION
  Report Type: Other
  Country: IN (occurrence: IN)
  Receive Date: 20130723
  Receipt Date: 20130731
  Transmission Date: 20140515
  Serious: Yes (Other)
  Sender: FDA-Public Use
  Company Number: IN-BRISTOL-MYERS SQUIBB COMPANY-19118157

PATIENT
  Age: 40 Year
  Sex: Female

DRUGS (4)
  1. METFORMIN HCL [Suspect]
     Indication: DIABETES MELLITUS
  2. ACECLOFENAC [Suspect]
     Indication: ARTHRALGIA
     Dosage: 1DF:5TO6TABS
     Dates: start: 2013
  3. SITAGLIPTIN PHOSPHATE [Suspect]
     Indication: DIABETES MELLITUS
  4. LOSARTAN [Suspect]
     Indication: HYPERTENSION

REACTIONS (1)
  - Tubulointerstitial nephritis [Recovered/Resolved]
